FAERS Safety Report 24044569 (Version 2)
Quarter: 2024Q3

REPORT INFORMATION
  Report Type: Spontaneous
  Country: US (occurrence: US)
  Receive Date: 20240703
  Receipt Date: 20240718
  Transmission Date: 20241017
  Serious: Yes (Hospitalization)
  Sender: TEVA
  Company Number: US-TEVA-VS-3214525

PATIENT
  Age: 32 Year
  Sex: Female

DRUGS (3)
  1. PROPOFOL [Suspect]
     Active Substance: PROPOFOL
     Indication: Sedative therapy
     Dosage: TOTAL PROPOFOL DOSE OF 161?MG/KG
     Route: 065
  2. FENTANYL [Concomitant]
     Active Substance: FENTANYL\FENTANYL CITRATE
     Indication: Sedative therapy
     Route: 065
  3. DEXAMETHASONE [Concomitant]
     Active Substance: DEXAMETHASONE
     Indication: Acute respiratory distress syndrome
     Route: 065

REACTIONS (6)
  - Propofol infusion syndrome [Recovering/Resolving]
  - Septic shock [Recovering/Resolving]
  - Rhabdomyolysis [Recovering/Resolving]
  - Cardiomyopathy [Recovering/Resolving]
  - Renal failure [Recovering/Resolving]
  - Blood triglycerides increased [Recovering/Resolving]
